FAERS Safety Report 14587142 (Version 1)
Quarter: 2018Q1

REPORT INFORMATION
  Report Type: Spontaneous
  Country: AR (occurrence: AR)
  Receive Date: 20180301
  Receipt Date: 20180301
  Transmission Date: 20180509
  Serious: Yes (Other)
  Sender: FDA-Public Use
  Company Number: AR-PFIZER INC-2018082273

PATIENT
  Age: 35 Year
  Sex: Male

DRUGS (2)
  1. SOMAVERT [Suspect]
     Active Substance: PEGVISOMANT
     Indication: GROWTH HORMONE DEFICIENCY
     Dosage: 15 MG, DAILY
     Dates: start: 20120102
  2. SOMATULINA [Concomitant]
     Active Substance: LANREOTIDE ACETATE
     Dosage: UNK

REACTIONS (2)
  - Adenoma benign [Unknown]
  - Neoplasm recurrence [Unknown]

NARRATIVE: CASE EVENT DATE: 2014
